FAERS Safety Report 8616201-2 (Version None)
Quarter: 2012Q3

REPORT INFORMATION
  Report Type: 
  Country: None (occurrence: None)
  Receive Date: 20120823
  Receipt Date: 20120817
  Transmission Date: 20120928
  Serious: Yes (Other)
  Sender: FDA-Public Use
  Company Number: US-BAYER-2012-086510

PATIENT
  Age: 45 Year
  Sex: Female
  Weight: 77 kg

DRUGS (28)
  1. TRASYLOL [Suspect]
     Dosage: 50 ML/HR
  2. ZESTRIL [Concomitant]
     Dosage: 20 MG, QD
     Route: 048
  3. SUCCINYLCHOLINE CHLORIDE [Concomitant]
     Dosage: UNK
     Route: 042
     Dates: start: 20060821, end: 20060821
  4. ALBUTEROL [Concomitant]
  5. PANCURONIUM BROMIDE [Concomitant]
     Dosage: UNK
     Route: 042
     Dates: start: 20060821, end: 20060821
  6. CEFEPIME [Concomitant]
  7. ELAVIL [Concomitant]
     Dosage: 25 MG ONE IN MORNING, 2 IN EVENING
  8. LIDOCAINE [Concomitant]
     Dosage: UNK
     Route: 042
     Dates: start: 20060821, end: 20060821
  9. AMIODARONE HCL [Concomitant]
     Dosage: UNK
     Route: 042
     Dates: start: 20060821
  10. ETOMIDATE [Concomitant]
     Dosage: UNK
     Route: 042
     Dates: start: 20060821, end: 20060821
  11. DILANTIN [Concomitant]
     Dosage: 100 MG, UNK
     Route: 048
  12. ATARAX [Concomitant]
  13. TEGRETOL [Concomitant]
     Dosage: 200 MG, QD
     Route: 048
  14. PEPCID [Concomitant]
     Route: 048
  15. HYDROCODONE [Concomitant]
     Route: 048
  16. TRAZODONE HYDROCHLORIDE [Concomitant]
     Dosage: 50 MG, UNK
     Route: 048
  17. VERSED [Concomitant]
     Dosage: UNK
     Route: 042
     Dates: start: 20060821, end: 20060821
  18. VANCOMYCIN [Concomitant]
  19. TRASYLOL [Suspect]
     Indication: AORTIC VALVE REPLACEMENT
     Dosage: 200 ML, PUMP PRIME
     Route: 042
     Dates: start: 20060821, end: 20060821
  20. TRASYLOL [Suspect]
     Dosage: 200 ML LOADING DOSE
  21. XANAX [Concomitant]
     Dosage: 0.5 MG, UNK
     Route: 048
  22. LEVOPHED [Concomitant]
     Dosage: UNK
     Route: 042
     Dates: start: 20060821
  23. FENTANYL [Concomitant]
     Dosage: UNK
     Route: 042
     Dates: start: 20060821, end: 20060821
  24. HEPARIN [Concomitant]
     Dosage: UNK
     Route: 042
     Dates: start: 20060821, end: 20060821
  25. FLAGYL [Concomitant]
  26. LASIX [Concomitant]
     Dosage: UNK
     Route: 048
  27. RANITIDINE [Concomitant]
     Dosage: 150 MG, BID
     Route: 048
  28. EPHEDRINE [Concomitant]
     Dosage: UNK
     Route: 042
     Dates: start: 20060821, end: 20060821

REACTIONS (1)
  - RENAL FAILURE ACUTE [None]
